FAERS Safety Report 20708698 (Version 1)
Quarter: 2022Q2

REPORT INFORMATION
  Report Type: Spontaneous
  Country: FR (occurrence: FR)
  Receive Date: 20220414
  Receipt Date: 20220414
  Transmission Date: 20220721
  Serious: Yes (Hospitalization, Other)
  Sender: FDA-Public Use
  Company Number: FR-AFSSAPS-GR20220929

PATIENT
  Age: 75 Year
  Sex: Male
  Weight: 55 kg

DRUGS (2)
  1. GEMCITABINE [Suspect]
     Active Substance: GEMCITABINE
     Indication: Pleural mesothelioma
     Dosage: NP ()
     Route: 042
     Dates: start: 20200811, end: 20200922
  2. BEVACIZUMAB [Suspect]
     Active Substance: BEVACIZUMAB
     Indication: Pleural mesothelioma
     Dosage: 780 MILLIGRAM
     Route: 042
     Dates: start: 20200428, end: 20200609

REACTIONS (1)
  - Cardiac failure [Not Recovered/Not Resolved]

NARRATIVE: CASE EVENT DATE: 20220216
